FAERS Safety Report 5820043-0 (Version None)
Quarter: 2008Q3

REPORT INFORMATION
  Report Type: 
  Country: None (occurrence: None)
  Receive Date: 20080724
  Receipt Date: 20080716
  Transmission Date: 20090109
  Serious: Yes (Other)
  Sender: FDA-Public Use
  Company Number: US-ASTRAZENECA-2006UW24601

PATIENT
  Age: 70 Year
  Sex: Female
  Weight: 68 kg

DRUGS (14)
  1. NEXIUM [Suspect]
     Indication: DYSPEPSIA
     Route: 048
     Dates: start: 20010101
  2. NEXIUM [Suspect]
     Indication: PROPHYLAXIS
     Route: 048
     Dates: start: 20010101
  3. SYNTHROID [Concomitant]
  4. FUROSEMIDE [Concomitant]
  5. PLAVIX [Concomitant]
  6. PREMARIN [Concomitant]
  7. POTASSIUM CHLORIDE [Concomitant]
  8. HYOSCYAMINE [Concomitant]
  9. LIPITOR [Concomitant]
  10. ATENOLOL [Concomitant]
  11. MYLANTA [Concomitant]
  12. STRESS TABS/VITAMIN SUPPLEMENTS [Concomitant]
  13. CALCIUM [Concomitant]
  14. LASIX [Concomitant]

REACTIONS (7)
  - ABDOMINAL DISTENSION [None]
  - ABDOMINAL PAIN [None]
  - CARDIAC FAILURE CONGESTIVE [None]
  - CONSTIPATION [None]
  - FLATULENCE [None]
  - WEIGHT DECREASED [None]
  - WEIGHT INCREASED [None]
